FAERS Safety Report 9116865 (Version 2)
Quarter: 2013Q3

REPORT INFORMATION
  Report Type: Report from Study
  Country: MX (occurrence: MX)
  Receive Date: 20130225
  Receipt Date: 20130731
  Transmission Date: 20140515
  Serious: Yes (Other)
  Sender: FDA-Public Use
  Company Number: PHHY2013MX017607

PATIENT
  Age: 73 Year
  Sex: Male

DRUGS (3)
  1. GALVUS [Suspect]
     Indication: DIABETES MELLITUS
     Dosage: 1 UKN, DAILY
     Dates: start: 201202
  2. EXFORGE [Suspect]
     Indication: HYPERTENSION
     Dosage: 0.5 DF(160/5MG), DAILY
     Route: 048
     Dates: start: 201202
  3. PRANDIN [Concomitant]
     Indication: DIABETES MELLITUS
     Dosage: 2 UKN, DAILY
     Dates: start: 201202

REACTIONS (4)
  - Pharyngeal oedema [Recovered/Resolved]
  - Nasal congestion [Recovered/Resolved]
  - Speech disorder [Recovered/Resolved]
  - Oropharyngeal pain [Recovered/Resolved]
